FAERS Safety Report 23642170 (Version 1)
Quarter: 2024Q1

REPORT INFORMATION
  Report Type: Spontaneous
  Country: US (occurrence: US)
  Receive Date: 20240318
  Receipt Date: 20240318
  Transmission Date: 20240410
  Serious: No
  Sender: FDA-Public Use
  Company Number: US-MACLEODS PHARMACEUTICALS US LTD-MAC2024046248

PATIENT

DRUGS (1)
  1. ESZOPICLONE [Suspect]
     Active Substance: ESZOPICLONE
     Indication: Insomnia
     Dosage: 1 DOSAGE FORM, QD (33342-301-11, 1 TABLET EVERY NIGHT)
     Route: 065
     Dates: start: 20240212

REACTIONS (3)
  - Night sweats [Unknown]
  - Abnormal dreams [Unknown]
  - Drug ineffective [Unknown]
